FAERS Safety Report 21166220 (Version 1)
Quarter: 2022Q3

REPORT INFORMATION
  Report Type: Spontaneous
  Country: US (occurrence: US)
  Receive Date: 20220803
  Receipt Date: 20220803
  Transmission Date: 20221027
  Serious: No
  Sender: FDA-Public Use
  Company Number: US-PFIZER INC-202201026368

PATIENT

DRUGS (1)
  1. PAXLOVID [Suspect]
     Active Substance: NIRMATRELVIR\RITONAVIR
     Indication: COVID-19 treatment
     Dosage: UNK
     Dates: start: 20220729

REACTIONS (7)
  - Tremor [Unknown]
  - Sneezing [Unknown]
  - Rhinorrhoea [Unknown]
  - Insomnia [Unknown]
  - Sleep disorder [Unknown]
  - Throat irritation [Unknown]
  - Pyrexia [Unknown]

NARRATIVE: CASE EVENT DATE: 20220701
